FAERS Safety Report 7502440-0 (Version None)
Quarter: 2011Q2

REPORT INFORMATION
  Report Type: 
  Country: None (occurrence: None)
  Receive Date: 20110525
  Receipt Date: 20110511
  Transmission Date: 20111010
  Serious: Yes (Other)
  Sender: FDA-Public Use
  Company Number: GB-JNJFOC-20101202089

PATIENT
  Sex: Male
  Weight: 97 kg

DRUGS (2)
  1. REMICADE [Suspect]
     Indication: RHEUMATOID ARTHRITIS
     Route: 042
     Dates: start: 20050412, end: 20050929
  2. ETANERCEPT [Suspect]
     Indication: RHEUMATOID ARTHRITIS

REACTIONS (1)
  - THYROID CANCER [None]
